FAERS Safety Report 7384738-2 (Version None)
Quarter: 2011Q1

REPORT INFORMATION
  Report Type: 
  Country: None (occurrence: None)
  Receive Date: 20110330
  Receipt Date: 20110317
  Transmission Date: 20110831
  Serious: Yes (Hospitalization)
  Sender: FDA-Public Use
  Company Number: PHHY2011US22044

PATIENT
  Sex: Female
  Weight: 59 kg

DRUGS (2)
  1. EXJADE [Suspect]
     Indication: BLOOD TEST ABNORMAL
     Dosage: 875 MG, DAILY
     Route: 048
     Dates: start: 20100806
  2. EXJADE [Suspect]
     Indication: IRON OVERLOAD

REACTIONS (1)
  - NEOPLASM MALIGNANT [None]
